FAERS Safety Report 5186499-4 (Version None)
Quarter: 2006Q4

REPORT INFORMATION
  Report Type: 
  Country: None (occurrence: None)
  Receive Date: 20061213
  Receipt Date: 20061127
  Transmission Date: 20070319
  Serious: Yes (Hospitalization)
  Sender: FDA-Public Use
  Company Number: PAR_1131_2006

PATIENT
  Age: 49 Year
  Sex: Female

DRUGS (2)
  1. IBUPROFEN [Suspect]
     Dosage: 400 MG ONCE PO
     Route: 048
     Dates: start: 20041001, end: 20041001
  2. IBUPROFEN [Suspect]
     Indication: NECK PAIN
     Dosage: 400 MG ONCE PO
     Route: 048
     Dates: start: 20040101, end: 20040101

REACTIONS (8)
  - AUTOIMMUNE THYROIDITIS [None]
  - CONFUSIONAL STATE [None]
  - MENINGITIS ASEPTIC [None]
  - MUSCULOSKELETAL STIFFNESS [None]
  - NEUTROPHILIA [None]
  - NYSTAGMUS [None]
  - SOMNOLENCE [None]
  - WHITE BLOOD CELL COUNT INCREASED [None]
